FAERS Safety Report 7774674-1 (Version None)
Quarter: 2011Q3

REPORT INFORMATION
  Report Type: 
  Country: None (occurrence: None)
  Receive Date: 20110923
  Receipt Date: 20110919
  Transmission Date: 20111222
  Serious: Yes (Other)
  Sender: FDA-Public Use
  Company Number: US-RB-028200-11

PATIENT
  Age: 58 Year
  Sex: Female

DRUGS (1)
  1. MUCINEX DM [Suspect]
     Indication: PRODUCT USED FOR UNKNOWN INDICATION
     Dosage: HALF A PILL EVERY FEW DAYS.
     Route: 048
     Dates: start: 20110905

REACTIONS (9)
  - DIARRHOEA [None]
  - ABDOMINAL PAIN UPPER [None]
  - WRONG TECHNIQUE IN DRUG USAGE PROCESS [None]
  - PRURITUS [None]
  - DIZZINESS [None]
  - NAUSEA [None]
  - EXPIRED DRUG ADMINISTERED [None]
  - HAEMOPTYSIS [None]
  - HAEMORRHAGE [None]
